FAERS Safety Report 23405367 (Version 1)
Quarter: 2024Q1

REPORT INFORMATION
  Report Type: Spontaneous
  Country: US (occurrence: None)
  Receive Date: 20240112
  Receipt Date: 20240112
  Transmission Date: 20240410
  Serious: Yes (unspecified)
  Sender: FDA-Public Use
  Company Number: None

PATIENT
  Age: 52 Year
  Sex: Female
  Weight: 56.7 kg

DRUGS (5)
  1. ATORVASTATIN [Suspect]
     Active Substance: ATORVASTATIN
     Indication: Blood cholesterol increased
     Dosage: OTHER FREQUENCY : EVERY NIGHT;?
     Route: 048
     Dates: start: 20230607, end: 20231111
  2. ATORVASTATIN [Suspect]
     Active Substance: ATORVASTATIN
     Indication: Blood triglycerides increased
  3. SERTRALINE [Concomitant]
     Active Substance: SERTRALINE HYDROCHLORIDE
  4. IC Clonazepam [Concomitant]
  5. ROSUVASTATIN [Suspect]
     Active Substance: ROSUVASTATIN

REACTIONS (5)
  - Lacrimation increased [None]
  - Eye irritation [None]
  - Skin exfoliation [None]
  - Vision blurred [None]
  - Eye infection [None]

NARRATIVE: CASE EVENT DATE: 20230601
